FAERS Safety Report 4569392-7 (Version None)
Quarter: 2005Q1

REPORT INFORMATION
  Report Type: 
  Country: None (occurrence: None)
  Receive Date: 20050118
  Receipt Date: 20040621
  Transmission Date: 20050727
  Serious: Yes (Other)
  Sender: FDA-Public Use
  Company Number: HQ1522328MAR2002

PATIENT
  Age: 59 Year
  Sex: Female
  Weight: 72.64 kg

DRUGS (2)
  1. PREMPRO [Suspect]
     Indication: HORMONE REPLACEMENT THERAPY
     Dosage: 0.625MG/ 2.5MG, ORAL
     Route: 048
     Dates: end: 20020101
  2. PREMARIN [Suspect]
     Dosage: UNSPECIFIED DOSAGE PRIOR TO PREMPRO USE, ORAL
     Route: 048

REACTIONS (1)
  - BREAST CANCER [None]
